FAERS Safety Report 5838537-0 (Version None)
Quarter: 2008Q3

REPORT INFORMATION
  Report Type: 
  Country: None (occurrence: None)
  Receive Date: 20080808
  Receipt Date: 20080724
  Transmission Date: 20090109
  Serious: Yes (Hospitalization, Other)
  Sender: FDA-Public Use
  Company Number: JP-ASTRAZENECA-2008AC01640

PATIENT
  Age: 70 Year
  Sex: Female

DRUGS (28)
  1. QUETIAPINE FUMARATE [Suspect]
     Indication: ANXIETY
     Route: 048
     Dates: start: 20060223, end: 20060425
  2. QUETIAPINE FUMARATE [Suspect]
     Indication: MANIA
     Route: 048
     Dates: start: 20060223, end: 20060425
  3. QUETIAPINE FUMARATE [Suspect]
     Route: 048
     Dates: start: 20060509, end: 20060518
  4. QUETIAPINE FUMARATE [Suspect]
     Route: 048
     Dates: start: 20060509, end: 20060518
  5. RADIOTHERAPY [Concomitant]
     Dates: start: 20060314, end: 20060421
  6. RIZE [Concomitant]
     Indication: METASTASES TO CENTRAL NERVOUS SYSTEM
     Route: 048
     Dates: end: 20060425
  7. RIZE [Concomitant]
     Indication: BREAST CANCER
     Route: 048
     Dates: end: 20060425
  8. TERNELIN [Concomitant]
     Indication: METASTASES TO CENTRAL NERVOUS SYSTEM
     Route: 048
     Dates: end: 20060425
  9. TERNELIN [Concomitant]
     Indication: BREAST CANCER
     Route: 048
     Dates: end: 20060425
  10. BEZATOL [Concomitant]
     Indication: METASTASES TO CENTRAL NERVOUS SYSTEM
     Route: 048
     Dates: end: 20060425
  11. BEZATOL [Concomitant]
     Indication: BREAST CANCER
     Route: 048
     Dates: end: 20060425
  12. VONTROL [Concomitant]
     Indication: METASTASES TO CENTRAL NERVOUS SYSTEM
     Route: 048
     Dates: end: 20060425
  13. VONTROL [Concomitant]
     Indication: BREAST CANCER
     Route: 048
     Dates: end: 20060425
  14. CARNACULIN [Concomitant]
     Indication: METASTASES TO CENTRAL NERVOUS SYSTEM
     Route: 048
     Dates: end: 20060425
  15. CARNACULIN [Concomitant]
     Indication: BREAST CANCER
     Route: 048
     Dates: end: 20060425
  16. NEUROVITAN [Concomitant]
     Indication: METASTASES TO CENTRAL NERVOUS SYSTEM
     Route: 048
     Dates: end: 20060425
  17. NEUROVITAN [Concomitant]
     Indication: BREAST CANCER
     Route: 048
     Dates: end: 20060425
  18. GASTER D [Concomitant]
     Indication: METASTASES TO CENTRAL NERVOUS SYSTEM
     Route: 048
     Dates: end: 20060425
  19. GASTER D [Concomitant]
     Indication: BREAST CANCER
     Route: 048
     Dates: end: 20060425
  20. BETAMETHASONE [Concomitant]
     Indication: METASTASES TO CENTRAL NERVOUS SYSTEM
     Route: 048
     Dates: end: 20060425
  21. BETAMETHASONE [Concomitant]
     Indication: BREAST CANCER
     Route: 048
     Dates: end: 20060425
  22. ISOBIDE [Concomitant]
     Indication: METASTASES TO CENTRAL NERVOUS SYSTEM
     Route: 048
     Dates: end: 20060425
  23. ISOBIDE [Concomitant]
     Indication: BREAST CANCER
     Route: 048
     Dates: end: 20060425
  24. COTRIM [Concomitant]
     Indication: METASTASES TO CENTRAL NERVOUS SYSTEM
     Route: 048
     Dates: start: 20060421, end: 20060425
  25. COTRIM [Concomitant]
     Indication: BREAST CANCER
     Route: 048
     Dates: start: 20060421, end: 20060425
  26. CRAVIT [Concomitant]
     Indication: METASTASES TO CENTRAL NERVOUS SYSTEM
     Route: 048
     Dates: start: 20060421, end: 20060425
  27. CRAVIT [Concomitant]
     Indication: BREAST CANCER
     Route: 048
     Dates: start: 20060421, end: 20060425
  28. HEPARIN SODIUM [Concomitant]
     Indication: PULMONARY EMBOLISM
     Dates: start: 20060420

REACTIONS (1)
  - PNEUMONITIS [None]
